FAERS Safety Report 6181588-X (Version None)
Quarter: 2009Q2

REPORT INFORMATION
  Report Type: 
  Country: None (occurrence: None)
  Receive Date: 20090506
  Receipt Date: 20090427
  Transmission Date: 20091009
  Serious: Yes (Hospitalization, Congenital Anomaly)
  Sender: FDA-Public Use
  Company Number: A0699517A

PATIENT
  Sex: Male

DRUGS (4)
  1. PAXIL [Suspect]
     Indication: DEPRESSION
     Dates: start: 19960101, end: 20031001
  2. PAROXETINE HCL [Suspect]
     Indication: ANXIETY
     Dates: start: 20040714
  3. VITAMIN TAB [Concomitant]
     Dates: start: 19970101, end: 20040101
  4. AMBIEN [Concomitant]
     Indication: SLEEP DISORDER
     Dates: start: 19960101, end: 20070101

REACTIONS (4)
  - ATRIAL SEPTAL DEFECT [None]
  - DRUG EXPOSURE DURING PREGNANCY [None]
  - MULTIPLE CONGENITAL ABNORMALITIES [None]
  - TRANSPOSITION OF THE GREAT VESSELS [None]
